FAERS Safety Report 9177539 (Version 2)
Quarter: 2013Q1

REPORT INFORMATION
  Report Type: Spontaneous
  Country: IT (occurrence: None)
  Receive Date: 20130319
  Receipt Date: 20130328
  Transmission Date: 20140127
  Serious: Yes (Hospitalization)
  Sender: FDA-Public Use
  Company Number: AUR-APL-2013-02231

PATIENT
  Age: 63 Year
  Sex: Male

DRUGS (8)
  1. LEVOFLOXACIN [Suspect]
     Indication: UPPER RESPIRATORY TRACT INFECTION
     Route: 048
     Dates: start: 20130130, end: 20130208
  2. RAMIPRIL [Suspect]
     Indication: HYPERTENSION
     Route: 048
     Dates: start: 20130130, end: 20130208
  3. CARDIOASPIRIN (ACETYLSALICYLIC ACID) [Concomitant]
  4. CARVEDILOL (CARVEDILOL) [Concomitant]
  5. ATORVASTATIN CALCIUM TRIHYDRATE (ATORVASTATIN CALCIUM) [Concomitant]
  6. METFORMIN HYDROCHLORIDE (METFORMIN HYDROCHLORIDE) [Concomitant]
  7. PANTOPRAZOLE SODIUM (PANTOPRAZOLE SODIUM) [Concomitant]
  8. CLOPIDOGREL(CLOPIDOGREL) [Concomitant]

REACTIONS (3)
  - Oedema peripheral [None]
  - Localised oedema [None]
  - Pruritus [None]
